FAERS Safety Report 7289394-X (Version None)
Quarter: 2011Q1

REPORT INFORMATION
  Report Type: 
  Country: None (occurrence: None)
  Receive Date: 20110211
  Receipt Date: 20110209
  Transmission Date: 20110831
  Serious: Yes (Other)
  Sender: FDA-Public Use
  Company Number: JP-PFIZER INC-2011028466

PATIENT
  Age: 78 Year
  Sex: Male

DRUGS (1)
  1. GABAPEN [Suspect]
     Route: 048

REACTIONS (1)
  - LIVER DISORDER [None]
